FAERS Safety Report 13554419 (Version 12)
Quarter: 2018Q4

REPORT INFORMATION
  Report Type: Report from Study
  Country: None (occurrence: US)
  Receive Date: 20170517
  Receipt Date: 20181025
  Transmission Date: 20190204
  Serious: Yes (Other)
  Sender: FDA-Public Use
  Company Number: US-ABBVIE-17K-163-1894637-00

PATIENT
  Age: 72 Year
  Sex: Female

DRUGS (3)
  1. HUMIRA [Suspect]
     Active Substance: ADALIMUMAB
     Route: 058
  2. HUMIRA [Suspect]
     Active Substance: ADALIMUMAB
     Route: 058
  3. HUMIRA [Suspect]
     Active Substance: ADALIMUMAB
     Indication: RHEUMATOID ARTHRITIS
     Route: 058
     Dates: start: 201605

REACTIONS (28)
  - Joint swelling [Unknown]
  - Nervousness [Unknown]
  - Joint stiffness [Unknown]
  - Humidity intolerance [Unknown]
  - Peripheral swelling [Unknown]
  - Fatigue [Unknown]
  - Vascular pain [Unknown]
  - Cartilage injury [Unknown]
  - Inflammation [Unknown]
  - Hyperhidrosis [Not Recovered/Not Resolved]
  - Headache [Recovered/Resolved]
  - Erythema [Unknown]
  - Pain in extremity [Unknown]
  - Arthralgia [Not Recovered/Not Resolved]
  - Feeling hot [Unknown]
  - Neuropathy peripheral [Not Recovered/Not Resolved]
  - Peripheral swelling [Unknown]
  - Rotator cuff syndrome [Recovering/Resolving]
  - Synovial cyst [Unknown]
  - Rash [Recovered/Resolved]
  - Joint injury [Unknown]
  - Gait disturbance [Unknown]
  - Diabetes mellitus [Unknown]
  - Peripheral swelling [Unknown]
  - Osteoarthritis [Unknown]
  - Arthritis [Unknown]
  - Fall [Unknown]
  - Peripheral venous disease [Unknown]

NARRATIVE: CASE EVENT DATE: 2016
